FAERS Safety Report 25550347 (Version 1)
Quarter: 2025Q3

REPORT INFORMATION
  Report Type: Spontaneous
  Country: CA (occurrence: CA)
  Receive Date: 20250714
  Receipt Date: 20250714
  Transmission Date: 20251021
  Serious: Yes (Other)
  Sender: PFIZER
  Company Number: CA-PFIZER INC-202500139157

PATIENT
  Age: 10 Year
  Sex: Female

DRUGS (1)
  1. METHOTREXATE SODIUM [Suspect]
     Active Substance: METHOTREXATE SODIUM
     Indication: Juvenile idiopathic arthritis
     Route: 065

REACTIONS (6)
  - Growth retardation [Unknown]
  - Condition aggravated [Unknown]
  - Drug intolerance [Unknown]
  - Muscle atrophy [Unknown]
  - Off label use [Unknown]
  - Off label use [Unknown]
